FAERS Safety Report 11598975 (Version 2)
Quarter: 2015Q4

REPORT INFORMATION
  Report Type: Spontaneous
  Country: US (occurrence: US)
  Receive Date: 20151006
  Receipt Date: 20151008
  Transmission Date: 20160304
  Serious: Yes (Other)
  Sender: FDA-Public Use
  Company Number: US-GLAXOSMITHKLINE-US2015140822

PATIENT
  Sex: Female

DRUGS (7)
  1. CRESTOR [Concomitant]
     Active Substance: ROSUVASTATIN CALCIUM
  2. ROPINIROLE. [Concomitant]
     Active Substance: ROPINIROLE
  3. HYDROCODONE [Concomitant]
     Active Substance: HYDROCODONE
  4. ASPIRIN 81 [Concomitant]
     Dosage: 81 MG, UNK
  5. MULTAQ [Concomitant]
     Active Substance: DRONEDARONE
  6. VERAPAMIL [Concomitant]
     Active Substance: VERAPAMIL HYDROCHLORIDE
  7. ADVAIR DISKUS [Suspect]
     Active Substance: FLUTICASONE PROPIONATE\SALMETEROL XINAFOATE
     Indication: CHRONIC OBSTRUCTIVE PULMONARY DISEASE
     Dosage: 1 PUFF(S), BID
     Route: 055
     Dates: start: 1995

REACTIONS (15)
  - Intracranial aneurysm [Recovered/Resolved]
  - Macular degeneration [Unknown]
  - Cerebrovascular accident [Unknown]
  - Brain operation [Unknown]
  - Neck pain [Not Recovered/Not Resolved]
  - Blindness [Unknown]
  - Aneurysm repair [Recovered/Resolved]
  - Back pain [Not Recovered/Not Resolved]
  - Nervousness [Not Recovered/Not Resolved]
  - Renal stone removal [Unknown]
  - Gait disturbance [Not Recovered/Not Resolved]
  - Pain in extremity [Not Recovered/Not Resolved]
  - Palpitations [Unknown]
  - Atrial fibrillation [Unknown]
  - Nephrolithiasis [Unknown]

NARRATIVE: CASE EVENT DATE: 1997
